FAERS Safety Report 24112929 (Version 1)
Quarter: 2024Q3

REPORT INFORMATION
  Report Type: Spontaneous
  Country: FR (occurrence: FR)
  Receive Date: 20240719
  Receipt Date: 20240719
  Transmission Date: 20241017
  Serious: Yes (Congenital Anomaly, Other)
  Sender: GUERBET
  Company Number: FR-GUERBETG-FR-20240262

PATIENT
  Sex: Male
  Weight: 0.7 kg

DRUGS (1)
  1. LIPIODOL [Suspect]
     Active Substance: ETHIODIZED OIL
     Indication: Therapeutic embolisation
     Dosage: 0.5 ML MIXTURE OF BIOLOGICAL GLUE AND LIPIODOL (IN A 1:2 RATIO).
     Route: 064

REACTIONS (6)
  - Foetal arrhythmia [Unknown]
  - Blood lactic acid increased [Unknown]
  - Foetal anaemia [Unknown]
  - Foetal exposure during pregnancy [Unknown]
  - Apgar score low [Unknown]
  - Premature baby [Unknown]
